FAERS Safety Report 10250272 (Version 1)
Quarter: 2014Q2

REPORT INFORMATION
  Report Type: Spontaneous
  Country: US (occurrence: US)
  Receive Date: 20140620
  Receipt Date: 20140620
  Transmission Date: 20141212
  Serious: Yes (Other)
  Sender: FDA-Public Use
  Company Number: US-ACTAVIS-2014-13891

PATIENT
  Age: 14 Year
  Sex: Female

DRUGS (2)
  1. VALPROIC ACID (UNKNOWN) [Suspect]
     Indication: IDIOPATHIC GENERALISED EPILEPSY
     Dosage: 750 MG, DAILY
     Route: 065
  2. MEROPENEM (UNKNOWN) [Interacting]
     Indication: PNEUMONIA
     Dosage: UNKNOWN
     Route: 065

REACTIONS (4)
  - Petit mal epilepsy [Recovered/Resolved]
  - Condition aggravated [Recovered/Resolved]
  - Anticonvulsant drug level decreased [Recovered/Resolved]
  - Drug interaction [Recovered/Resolved]
